FAERS Safety Report 19424815 (Version 3)
Quarter: 2024Q1

REPORT INFORMATION
  Report Type: Spontaneous
  Country: GB (occurrence: GB)
  Receive Date: 20210617
  Receipt Date: 20240219
  Transmission Date: 20240409
  Serious: Yes (Hospitalization, Other)
  Sender: FDA-Public Use
  Company Number: None

PATIENT
  Age: 26 Year
  Sex: Male

DRUGS (13)
  1. TACROLIMUS [Suspect]
     Active Substance: TACROLIMUS
     Indication: Immunosuppressant drug therapy
     Dosage: 2 MILLIGRAM, BID (REDUCED DOSE)
     Route: 065
  2. TACROLIMUS [Suspect]
     Active Substance: TACROLIMUS
     Indication: Renal transplant
     Dosage: 5 MILLIGRAM, BID
     Route: 065
     Dates: start: 2001, end: 2016
  3. MYCOPHENOLATE MOFETIL [Suspect]
     Active Substance: MYCOPHENOLATE MOFETIL
     Indication: Immunosuppressant drug therapy
     Dosage: 500 MILLIGRAM, BID (FILM-COATED TABLET)
     Route: 065
     Dates: start: 2001, end: 2016
  4. MYCOPHENOLATE MOFETIL [Suspect]
     Active Substance: MYCOPHENOLATE MOFETIL
     Indication: Renal transplant
  5. PREDNISOLONE [Suspect]
     Active Substance: PREDNISOLONE
     Indication: Immunosuppressant drug therapy
     Dosage: 5 MILLIGRAM, QD
     Route: 065
     Dates: start: 2001, end: 2016
  6. PREDNISOLONE [Suspect]
     Active Substance: PREDNISOLONE
     Indication: Renal transplant
  7. CEFTRIAXONE [Concomitant]
     Active Substance: CEFTRIAXONE\CEFTRIAXONE SODIUM
     Indication: Meningitis
     Dosage: UNK
     Route: 042
  8. ACYCLOVIR [Concomitant]
     Active Substance: ACYCLOVIR
     Indication: Meningitis
     Dosage: UNK
     Route: 065
  9. MEROPENEM [Concomitant]
     Active Substance: MEROPENEM
     Indication: Antibiotic therapy
     Dosage: UNK
     Route: 065
  10. SULFADIAZINE [Concomitant]
     Active Substance: SULFADIAZINE
     Indication: Toxoplasmosis
     Dosage: 1500 MILLIGRAM, EVERY 6 HRS
     Route: 065
  11. PYRIMETHAMINE [Concomitant]
     Active Substance: PYRIMETHAMINE
     Indication: Toxoplasmosis
     Dosage: 75 MILLIGRAM, DAILY
     Route: 065
  12. LEUCOVORIN [Concomitant]
     Active Substance: LEUCOVORIN\LEUCOVORIN CALCIUM
     Indication: Toxoplasmosis
     Dosage: UNK
     Route: 065
  13. CLINDAMYCIN [Concomitant]
     Active Substance: CLINDAMYCIN
     Indication: Toxoplasmosis
     Dosage: 600 MILLIGRAM, EVERY 6 HRS (TO COMPLETE 6 WEEKS THERAPY)
     Route: 065

REACTIONS (5)
  - Central nervous system immune reconstitution inflammatory response [Recovered/Resolved]
  - Eye infection toxoplasmal [Recovered/Resolved]
  - Epstein-Barr virus infection reactivation [Recovered/Resolved]
  - Toxoplasmosis [Recovered/Resolved]
  - Transplant rejection [Unknown]

NARRATIVE: CASE EVENT DATE: 20120101
